FAERS Safety Report 26054600 (Version 1)
Quarter: 2025Q4

REPORT INFORMATION
  Report Type: Spontaneous
  Country: CN (occurrence: CN)
  Receive Date: 20251117
  Receipt Date: 20251117
  Transmission Date: 20260118
  Serious: Yes (Hospitalization)
  Sender: JOHNSON AND JOHNSON
  Company Number: CN-JNJFOC-20251150619

PATIENT
  Age: 56 Year
  Sex: Male
  Weight: 63 kg

DRUGS (5)
  1. DARZALEX FASPRO [Suspect]
     Active Substance: DARATUMUMAB\HYALURONIDASE-FIHJ
     Indication: Plasma cell myeloma
     Dosage: WEEKS 1-8, ONCE EVERY 2 WEEKS FOR WEEKS 9-24
     Route: 058
     Dates: start: 20251029, end: 20251029
  2. CARFILZOMIB [Suspect]
     Active Substance: CARFILZOMIB
     Indication: Plasma cell myeloma
     Dosage: 60 MG/VIAL
     Route: 041
  3. CARFILZOMIB [Suspect]
     Active Substance: CARFILZOMIB
     Dosage: CALCULATED DOSE 47.25 MG, ACTUAL DOSE 50 MG?ON DAYS 1-2, 8-9, AND 15-16
     Route: 041
     Dates: start: 20251029, end: 20251029
  4. DEXAMETHASONE [Suspect]
     Active Substance: DEXAMETHASONE
     Indication: Plasma cell myeloma
     Dosage: ON DAYS 1-2, 8-9, 15-16, AND 22-23
     Route: 041
  5. DEXTROSE [Concomitant]
     Active Substance: DEXTROSE MONOHYDRATE
     Indication: Product used for unknown indication
     Dosage: 5%
     Dates: start: 20251029

REACTIONS (6)
  - Pyrexia [Recovering/Resolving]
  - Myelosuppression [Recovering/Resolving]
  - Anaemia [Recovering/Resolving]
  - White blood cell count decreased [Recovering/Resolving]
  - Neutrophil count decreased [Recovering/Resolving]
  - Platelet count decreased [Recovering/Resolving]

NARRATIVE: CASE EVENT DATE: 20251031
